FAERS Safety Report 24089361 (Version 1)
Quarter: 2024Q3

REPORT INFORMATION
  Report Type: Spontaneous
  Country: CH (occurrence: CH)
  Receive Date: 20240715
  Receipt Date: 20240715
  Transmission Date: 20241017
  Serious: Yes (Other)
  Sender: SANOFI AVENTIS
  Company Number: None

PATIENT
  Age: 67 Year
  Sex: Male

DRUGS (3)
  1. RIFAMPIN [Suspect]
     Active Substance: RIFAMPIN
     Indication: Endocarditis
     Dosage: 600 MG, BID
     Route: 040
     Dates: start: 20230111, end: 20230224
  2. RIFAMPIN [Suspect]
     Active Substance: RIFAMPIN
     Dosage: 450 MG, BID
     Route: 048
     Dates: start: 20230225, end: 20230302
  3. CORDARONE [Suspect]
     Active Substance: AMIODARONE HYDROCHLORIDE
     Indication: Ventricular tachycardia
     Dosage: 200 MG, QD
     Route: 048
     Dates: start: 202109

REACTIONS (4)
  - Cardioactive drug level decreased [Unknown]
  - Arrhythmic storm [Recovered/Resolved]
  - Arrhythmic storm [Recovered/Resolved]
  - Drug interaction [Recovered/Resolved]

NARRATIVE: CASE EVENT DATE: 20230101
